FAERS Safety Report 8410054-3 (Version None)
Quarter: 2012Q2

REPORT INFORMATION
  Report Type: 
  Country: None (occurrence: None)
  Receive Date: 20120605
  Receipt Date: 20120601
  Transmission Date: 20120825
  Serious: Yes (Hospitalization, Other)
  Sender: FDA-Public Use
  Company Number: US-BAYER-2011-086400

PATIENT
  Sex: Female
  Weight: 87 kg

DRUGS (5)
  1. YAZ [Suspect]
     Dosage: UNK
     Route: 048
     Dates: start: 20090901, end: 20091001
  2. CEPHALEXIN [Concomitant]
     Dosage: 500 MG, TID
     Route: 048
     Dates: start: 20100114
  3. IBUPROFEN [Concomitant]
     Dosage: UNK
     Dates: start: 20100101
  4. PROMETHAZINE DM [Concomitant]
     Dosage: UNK
     Route: 048
     Dates: start: 20100114
  5. NORGESTIMATE AND ETHINYL ESTRADIOL [Concomitant]
     Dosage: UNK
     Route: 048
     Dates: start: 20100112, end: 20100404

REACTIONS (10)
  - CHOLECYSTITIS [None]
  - INJURY [None]
  - CEREBROVASCULAR ACCIDENT [None]
  - MYOCARDIAL INFARCTION [None]
  - PAIN [None]
  - GALLBLADDER DISORDER [None]
  - PULMONARY EMBOLISM [None]
  - DEEP VEIN THROMBOSIS [None]
  - FEAR [None]
  - CHOLELITHIASIS [None]
